FAERS Safety Report 11437469 (Version 1)
Quarter: 2015Q3

REPORT INFORMATION
  Report Type: Spontaneous
  Country: US (occurrence: US)
  Receive Date: 20150821
  Receipt Date: 20150821
  Transmission Date: 20151125
  Serious: No
  Sender: FDA-Public Use
  Company Number: US-ELI_LILLY_AND_COMPANY-US200705000440

PATIENT
  Age: 37 Year
  Sex: Female

DRUGS (2)
  1. PAXIL [Concomitant]
     Active Substance: PAROXETINE HYDROCHLORIDE
  2. CYMBALTA [Suspect]
     Active Substance: DULOXETINE HYDROCHLORIDE
     Indication: ARTHRALGIA
     Dosage: 60 MG, UNK
     Dates: start: 2005

REACTIONS (7)
  - Nausea [Unknown]
  - Withdrawal syndrome [Unknown]
  - Dizziness [Unknown]
  - Gait disturbance [Unknown]
  - Nightmare [Unknown]
  - Tremor [Unknown]
  - Cold sweat [Unknown]
